FAERS Safety Report 7523285-1 (Version None)
Quarter: 2011Q2

REPORT INFORMATION
  Report Type: 
  Country: None (occurrence: None)
  Receive Date: 20110603
  Receipt Date: 20110527
  Transmission Date: 20111010
  Serious: Yes (Death)
  Sender: FDA-Public Use
  Company Number: A0892071A

PATIENT
  Age: 57 Year
  Sex: Male

DRUGS (10)
  1. ATENOLOL [Concomitant]
  2. SANTYL [Concomitant]
  3. VIT C [Concomitant]
  4. VOTRIENT [Suspect]
     Dosage: 800MG PER DAY
     Route: 048
     Dates: start: 20101014
  5. CALCIUM CARBONATE [Concomitant]
  6. MORPHINE [Concomitant]
  7. LEVOTHYROXINE SODIUM [Concomitant]
  8. VITAMIN D [Concomitant]
  9. LISINOPRIL [Concomitant]
  10. BACTRIM [Concomitant]

REACTIONS (6)
  - HAIR COLOUR CHANGES [None]
  - DEATH [None]
  - HYPERTENSION [None]
  - DIARRHOEA [None]
  - UPPER LIMB FRACTURE [None]
  - NAUSEA [None]
